FAERS Safety Report 7775323-9 (Version None)
Quarter: 2011Q3

REPORT INFORMATION
  Report Type: 
  Country: None (occurrence: None)
  Receive Date: 20110922
  Receipt Date: 20110908
  Transmission Date: 20111222
  Serious: Yes (Other)
  Sender: FDA-Public Use
  Company Number: B0748101B

PATIENT

DRUGS (8)
  1. QUETIAPINE FUMARATE [Suspect]
     Dosage: TRANSMAMMARY
     Route: 063
  2. CITALOPRAM (FORMULATION UNKNOWN) (CITALOPRAM) [Suspect]
     Dosage: TRANSPLACENTARY
     Route: 064
  3. QUETIAPINE [Suspect]
     Dosage: TRANSPLACENTARY
     Route: 064
  4. LAMOTRIGINE [Suspect]
     Indication: BIPOLAR DISORDER
     Dosage: 200 MG/PER DAY/ TRANSPLACENTARY
     Route: 064
  5. LAMOTRIGINE [Suspect]
     Indication: BIPOLAR DISORDER
     Dosage: 200 MG/PER DAY/ TRANSPLACENTARY
     Route: 064
  6. CITALOPRAM (FORMULATION UNKNOWN) (CITALOPRAM) [Suspect]
     Dosage: TRANSMAMMARY
     Route: 063
  7. LITHIUM CARBONATE [Suspect]
     Dosage: TRANSPLACENTARY
     Route: 063
  8. LITHIUM CARBONATE [Suspect]
     Dosage: TRANSMAMMARY
     Route: 063

REACTIONS (4)
  - MATERNAL DRUGS AFFECTING FOETUS [None]
  - PREMATURE BABY [None]
  - HEPATIC ENZYME INCREASED [None]
  - EXPOSURE DURING BREAST FEEDING [None]
